FAERS Safety Report 9168621 (Version 2)
Quarter: 2013Q2

REPORT INFORMATION
  Report Type: Spontaneous
  Country: JP (occurrence: JP)
  Receive Date: 20130318
  Receipt Date: 20130408
  Transmission Date: 20140414
  Serious: Yes (Life-Threatening, Hospitalization)
  Sender: FDA-Public Use
  Company Number: JP-PFIZER INC-2013087744

PATIENT
  Age: 48 Year
  Sex: Female

DRUGS (16)
  1. SELARA [Suspect]
     Indication: HYPERTENSION
     Dosage: 50 MG, DAILY
     Route: 048
     Dates: start: 20130201, end: 20130226
  2. PROGRAF [Suspect]
     Indication: SYSTEMIC LUPUS ERYTHEMATOSUS
     Dosage: 1 MG, DAILY
     Route: 048
     Dates: start: 20130211, end: 20130218
  3. PROGRAF [Suspect]
     Dosage: 2 MG, DAILY
     Route: 048
     Dates: start: 20130219, end: 20130225
  4. MICARDIS [Suspect]
     Indication: HYPERTENSION
     Dosage: 80 MG, DAILY
     Route: 048
     Dates: end: 20130226
  5. CRAVIT [Suspect]
     Indication: CYSTITIS
     Dosage: 500 MG, DAILY
     Route: 048
     Dates: start: 20130221, end: 20130227
  6. VALTREX [Suspect]
     Indication: HERPES ZOSTER
     Dosage: 2000 MG, DAILY
     Route: 048
     Dates: start: 20130224, end: 20130304
  7. SIGMART [Concomitant]
     Dosage: UNK
     Route: 048
  8. GASTER [Concomitant]
     Dosage: 20 MG, DAILY
     Route: 048
  9. AMLODIN [Concomitant]
     Dosage: 5 MG, DAILY
     Route: 048
  10. WARFARIN [Concomitant]
     Dosage: 1.5 MG, DAILY
     Route: 048
  11. BONALON [Concomitant]
     Dosage: UNK
     Route: 048
  12. MAINTATE [Concomitant]
     Dosage: 1.875 MG, DAILY
     Route: 048
  13. PREDONINE [Concomitant]
     Dosage: 25 MG, DAILY
     Route: 048
  14. BIOFERMIN [Concomitant]
     Dosage: UNK
     Route: 048
  15. PIMOBENDAN [Concomitant]
     Dosage: 1.25 MG, DAILY
     Route: 048
  16. DIART [Concomitant]
     Dosage: 30 MG, DAILY
     Route: 048
     Dates: start: 20130128

REACTIONS (1)
  - Renal impairment [Recovered/Resolved]
